FAERS Safety Report 18422288 (Version 1)
Quarter: 2020Q4

REPORT INFORMATION
  Report Type: Spontaneous
  Country: US (occurrence: US)
  Receive Date: 20201023
  Receipt Date: 20201023
  Transmission Date: 20210114
  Serious: No
  Sender: FDA-Public Use
  Company Number: US-JNJFOC-A-NJ2019-199165

PATIENT
  Age: 73 Year
  Sex: Male
  Weight: 77.1 kg

DRUGS (3)
  1. OPSUMIT [Suspect]
     Active Substance: MACITENTAN
     Indication: PULMONARY ARTERIAL HYPERTENSION
     Dosage: 10 MG, QD
     Route: 048
     Dates: start: 20190913
  2. REMODULIN [Concomitant]
     Active Substance: TREPROSTINIL
  3. ADEMPAS [Concomitant]
     Active Substance: RIOCIGUAT
     Dosage: 0.5 MG, TID

REACTIONS (11)
  - Weight increased [Unknown]
  - Decreased appetite [Not Recovered/Not Resolved]
  - Oxygen consumption increased [Unknown]
  - Rales [Unknown]
  - Dyspnoea [Not Recovered/Not Resolved]
  - Hypotension [Unknown]
  - Diarrhoea [Unknown]
  - Oedema peripheral [Recovered/Resolved]
  - Pain in jaw [Unknown]
  - Fluid overload [Not Recovered/Not Resolved]
  - Oedema [Not Recovered/Not Resolved]

NARRATIVE: CASE EVENT DATE: 202002
